FAERS Safety Report 5123745-7 (Version None)
Quarter: 2006Q4

REPORT INFORMATION
  Report Type: 
  Country: None (occurrence: None)
  Receive Date: 20061005
  Receipt Date: 20060916
  Transmission Date: 20070319
  Serious: Yes (Hospitalization, Other)
  Sender: FDA-Public Use
  Company Number: DE200609004220

PATIENT
  Age: 14 Year
  Sex: Male

DRUGS (1)
  1. STRATTERA [Suspect]
     Indication: ATTENTION DEFICIT/HYPERACTIVITY DISORDER
     Dosage: 60 MG, DAILY 1/D, ORAL
     Route: 048

REACTIONS (7)
  - CONVULSION [None]
  - HYPOCHLORAEMIA [None]
  - METABOLIC ALKALOSIS [None]
  - OLIGURIA [None]
  - RENAL FAILURE ACUTE [None]
  - TETANY [None]
  - TUBULOINTERSTITIAL NEPHRITIS [None]
